FAERS Safety Report 9433388 (Version 2)
Quarter: 2013Q3

REPORT INFORMATION
  Report Type: Spontaneous
  Country: JP (occurrence: JP)
  Receive Date: 20130731
  Receipt Date: 20130807
  Transmission Date: 20140515
  Serious: Yes (Life-Threatening, Other)
  Sender: FDA-Public Use
  Company Number: JP-B.I. PHARMACEUTICALS,INC./RIDGEFIELD-2013-BI-22572NB

PATIENT
  Age: 86 Year
  Sex: Male
  Weight: 44 kg

DRUGS (8)
  1. PRAZAXA [Suspect]
     Indication: ATRIAL FIBRILLATION
     Dosage: 300 MG
     Route: 048
     Dates: start: 20101017, end: 20130502
  2. FUROSEMIDE [Concomitant]
     Dosage: 10 MG
     Route: 048
  3. VERAPAMIL HYDROCHLORIDE [Concomitant]
     Dosage: 40 MG
     Route: 065
  4. RESPLEN [Concomitant]
     Dosage: 0.5 MG
     Route: 065
  5. SEDEKOPAN [Concomitant]
     Route: 065
  6. MAGLAX [Concomitant]
     Route: 065
  7. SENNARIDE [Concomitant]
     Route: 065
  8. CHALDOL [Concomitant]
     Route: 065

REACTIONS (5)
  - Subcutaneous haematoma [Recovered/Resolved]
  - Shock haemorrhagic [Recovered/Resolved]
  - Disseminated intravascular coagulation [Recovered/Resolved]
  - Pelvic fracture [Unknown]
  - Fall [Unknown]
